FAERS Safety Report 9330884 (Version 1)
Quarter: 2013Q2

REPORT INFORMATION
  Report Type: Spontaneous
  Country: US (occurrence: None)
  Receive Date: 20130531
  Receipt Date: 20130531
  Transmission Date: 20140414
  Serious: No
  Sender: FDA-Public Use
  Company Number: CA-ALSI-201300136

PATIENT
  Age: 85 Year
  Sex: Male

DRUGS (3)
  1. OXYGEN [Suspect]
     Route: 055
  2. PAXIL [Suspect]
  3. COUMADIN (WARFARIN SODIUM) [Concomitant]

REACTIONS (6)
  - Cardiac failure [None]
  - Drug interaction [None]
  - Localised infection [None]
  - Oedema peripheral [None]
  - Pulmonary oedema [None]
  - Respiratory distress [None]
